FAERS Safety Report 6431398-0 (Version None)
Quarter: 2009Q4

REPORT INFORMATION
  Report Type: 
  Country: None (occurrence: None)
  Receive Date: 20091106
  Receipt Date: 20091029
  Transmission Date: 20100525
  Serious: Yes (Other)
  Sender: FDA-Public Use
  Company Number: PHHY2009DE47148

PATIENT
  Sex: Female

DRUGS (5)
  1. FEMARA [Suspect]
     Indication: BREAST CANCER
     Dosage: 2.5 MG, DAILY
     Route: 048
     Dates: start: 20090914, end: 20090921
  2. BYETTA [Concomitant]
     Indication: DIABETES MELLITUS
     Dosage: 2 DF (10UG)
  3. BLOPRESS [Concomitant]
     Indication: HYPERTENSION
     Dosage: 1/2 DF (16 MG) TWICE DAILY
  4. BENZBROMARONE [Concomitant]
     Indication: BLOOD URIC ACID
     Dosage: 1 DF (100 MG), EVERY OTHER DAY
  5. OMEPRAZOLE [Concomitant]
     Indication: ABDOMINAL DISCOMFORT
     Dosage: 40 MG, IF NEEDED

REACTIONS (14)
  - ABDOMINAL PAIN [None]
  - BEDRIDDEN [None]
  - BLOOD PRESSURE DECREASED [None]
  - CHILLS [None]
  - DECREASED APPETITE [None]
  - FATIGUE [None]
  - GASTRIC DISORDER [None]
  - HEART RATE INCREASED [None]
  - HOT FLUSH [None]
  - MALAISE [None]
  - MYALGIA [None]
  - URINARY TRACT INFECTION [None]
  - VOMITING [None]
  - WEIGHT DECREASED [None]
